FAERS Safety Report 25678716 (Version 1)
Quarter: 2025Q3

REPORT INFORMATION
  Report Type: Spontaneous
  Country: CN (occurrence: CN)
  Receive Date: 20250814
  Receipt Date: 20250814
  Transmission Date: 20251020
  Serious: Yes (Hospitalization)
  Sender: ALEXION PHARMACEUTICALS
  Company Number: CN-ASTRAZENECA-202508CHN006329CN

PATIENT
  Age: 57 Year
  Sex: Female
  Weight: 53 kg

DRUGS (2)
  1. TAGRISSO [Suspect]
     Active Substance: OSIMERTINIB
     Indication: Lung carcinoma cell type unspecified stage 0
     Dates: start: 20250208, end: 20250708
  2. SAVOLITINIB [Concomitant]
     Active Substance: SAVOLITINIB
     Indication: Lung carcinoma cell type unspecified stage 0
     Dates: start: 20250208, end: 20250708

REACTIONS (4)
  - Blood creatine phosphokinase increased [Not Recovered/Not Resolved]
  - Dyspnoea [Unknown]
  - Myocardial injury [Unknown]
  - Fatigue [Unknown]

NARRATIVE: CASE EVENT DATE: 20250708
